FAERS Safety Report 16115911 (Version 1)
Quarter: 2019Q2

REPORT INFORMATION
  Report Type: Spontaneous
  Country: US (occurrence: US)
  Receive Date: 20190325
  Receipt Date: 20190325
  Transmission Date: 20190711
  Serious: Yes (Other)
  Sender: FDA-Public Use
  Company Number: None

PATIENT
  Age: 71 Year
  Sex: Male
  Weight: 102.3 kg

DRUGS (1)
  1. BUPIVACAINE HYDROCHLORIDE SPINAL INJECTION (MARCAINE EQUIVALENT) [Suspect]
     Active Substance: BUPIVACAINE HYDROCHLORIDE
     Indication: KNEE ARTHROPLASTY
     Dosage: ?          OTHER FREQUENCY:ONE-TIME;?
     Dates: start: 20190227, end: 20190227

REACTIONS (2)
  - Drug ineffective [None]
  - Inadequate analgesia [None]

NARRATIVE: CASE EVENT DATE: 20190227
